FAERS Safety Report 6639705-0 (Version None)
Quarter: 2010Q1

REPORT INFORMATION
  Report Type: 
  Country: None (occurrence: None)
  Receive Date: 20100318
  Receipt Date: 20100304
  Transmission Date: 20100710
  Serious: Yes (Disabling)
  Sender: FDA-Public Use
  Company Number: PHHY2010FR13152

PATIENT
  Age: 49 Year
  Sex: Female

DRUGS (1)
  1. ZOMETA [Suspect]
     Indication: METASTASES TO BONE
     Dosage: 1 INFUSION MONTHLY
     Dates: start: 20060601, end: 20061101

REACTIONS (2)
  - BONE LESION [None]
  - TOOTH INJURY [None]
